FAERS Safety Report 6288033-4 (Version None)
Quarter: 2009Q3

REPORT INFORMATION
  Report Type: 
  Country: None (occurrence: None)
  Receive Date: 20090729
  Receipt Date: 20090717
  Transmission Date: 20100115
  Serious: Yes (Death)
  Sender: FDA-Public Use
  Company Number: US-ROCHE-645742

PATIENT
  Sex: Male
  Weight: 92.9 kg

DRUGS (12)
  1. XELODA [Suspect]
     Indication: ADENOCARCINOMA
     Dosage: 1500 MG, BID
     Route: 048
     Dates: start: 20090521, end: 20090702
  2. XELODA [Suspect]
     Dosage: 1500 MG, BID
     Route: 048
     Dates: start: 20090521, end: 20090702
  3. BEVACIZUMAB [Suspect]
     Indication: ADENOCARCINOMA
     Dosage: 1395 MG, UNK
     Route: 042
     Dates: start: 20090521, end: 20090702
  4. OXALIPLATIN [Suspect]
     Indication: ADENOCARCINOMA
     Dosage: 276 MG, UNK
     Route: 042
     Dates: start: 20090521, end: 20090702
  5. BENICAR HCT [Concomitant]
     Indication: DRUG USE FOR UNKNOWN INDICATION
     Dosage: 1 UNK, QD
     Dates: start: 20090521, end: 20090714
  6. NORVASC [Concomitant]
     Indication: DRUG USE FOR UNKNOWN INDICATION
     Dosage: 5 MG, QD
     Dates: start: 20090521, end: 20090714
  7. NORVASC [Concomitant]
     Dosage: 5 MG, QD
     Dates: start: 20090521, end: 20090714
  8. ACIPHEX [Concomitant]
     Indication: DRUG USE FOR UNKNOWN INDICATION
     Dosage: 20 MG, QD
     Dates: start: 20090521, end: 20090714
  9. ACIPHEX [Concomitant]
     Dosage: 20 MG, QD
     Dates: start: 20090521, end: 20090714
  10. PERCOCET [Concomitant]
     Indication: DRUG USE FOR UNKNOWN INDICATION
     Dosage: UNK
     Dates: start: 20090521, end: 20090714
  11. AMBIEN [Concomitant]
     Indication: DRUG USE FOR UNKNOWN INDICATION
     Dosage: 10 MG, QHS
     Dates: start: 20090707, end: 20090714
  12. AMBIEN [Concomitant]
     Dosage: 10 MG, QHS
     Dates: start: 20090707, end: 20090714

REACTIONS (1)
  - HEPATIC FAILURE [None]
